FAERS Safety Report 6213401-6 (Version None)
Quarter: 2009Q2

REPORT INFORMATION
  Report Type: 
  Country: None (occurrence: None)
  Receive Date: 20090601
  Receipt Date: 20090520
  Transmission Date: 20091009
  Serious: Yes (Death, Hospitalization)
  Sender: FDA-Public Use
  Company Number: A-JP2009-25438

PATIENT
  Age: 71 Year
  Sex: Female

DRUGS (10)
  1. TRACLEER [Suspect]
     Indication: PORTOPULMONARY HYPERTENSION
     Dosage: 62.5 MG, BID, ORAL
     Route: 048
     Dates: start: 20060703, end: 20081005
  2. TEPRENONE (TEPRENONE) [Concomitant]
  3. SODIUM ALGINATE (SODIUM ALGINATE) [Concomitant]
  4. ISOLEUCINE (ISOLEUCINE) [Concomitant]
  5. LEUCINE (LEUCINE) [Concomitant]
  6. VALINE (VALINE) [Concomitant]
  7. LOSARTAN POTASSIUM [Concomitant]
  8. SPIRONOLACTONE [Concomitant]
  9. FAMOTIDINE [Concomitant]
  10. OXYGEN (OXYGEN) [Concomitant]

REACTIONS (3)
  - COMA HEPATIC [None]
  - CONDITION AGGRAVATED [None]
  - ORGANISING PNEUMONIA [None]
